FAERS Safety Report 15308644 (Version 1)
Quarter: 2018Q4

REPORT INFORMATION
  Report Type: Spontaneous
  Country: US (occurrence: US)
  Receive Date: 20180822
  Receipt Date: 20180822
  Transmission Date: 20190204
  Serious: No
  Sender: FDA-Public Use
  Company Number: US-TARO-2017TAR00938

PATIENT
  Sex: Female

DRUGS (1)
  1. METRONIDAZOLE TOPICAL [Suspect]
     Active Substance: METRONIDAZOLE
     Indication: ROSACEA
     Dosage: UNK

REACTIONS (3)
  - Product substitution issue [Recovered/Resolved]
  - Skin reaction [Not Recovered/Not Resolved]
  - Reaction to excipient [Not Recovered/Not Resolved]
